FAERS Safety Report 10201428 (Version 1)
Quarter: 2014Q2

REPORT INFORMATION
  Report Type: Spontaneous
  Country: US (occurrence: US)
  Receive Date: 20140528
  Receipt Date: 20140528
  Transmission Date: 20141212
  Serious: Yes (Other)
  Sender: FDA-Public Use
  Company Number: US-BAYER-2014-077914

PATIENT
  Sex: Male

DRUGS (1)
  1. STAXYN (FDT/ODT) [Suspect]
     Dosage: 10 MG, UNK
     Route: 048

REACTIONS (1)
  - Lyme disease [None]
